FAERS Safety Report 10180345 (Version 1)
Quarter: 2014Q2

REPORT INFORMATION
  Report Type: Spontaneous
  Country: US (occurrence: US)
  Receive Date: 20140519
  Receipt Date: 20140519
  Transmission Date: 20141212
  Serious: No
  Sender: FDA-Public Use
  Company Number: US-GILEAD-2014-0102657

PATIENT
  Age: 84 Year
  Sex: Male

DRUGS (1)
  1. RANEXA [Suspect]
     Indication: ANGINA PECTORIS
     Dosage: UNK
     Route: 065

REACTIONS (6)
  - Movement disorder [Unknown]
  - Abnormal behaviour [Unknown]
  - Therapeutic response changed [Unknown]
  - Therapeutic response changed [Unknown]
  - Renal impairment [Unknown]
  - Asthenia [Unknown]
